FAERS Safety Report 9548432 (Version 1)
Quarter: 2013Q3

REPORT INFORMATION
  Report Type: Spontaneous
  Country: US (occurrence: None)
  Receive Date: 20130919
  Receipt Date: 20130919
  Transmission Date: 20140515
  Serious: Yes (Hospitalization)
  Sender: FDA-Public Use
  Company Number: 2013P1019170

PATIENT
  Sex: 0

DRUGS (1)
  1. ADDERALL [Suspect]
     Dosage: 1/2 TABLET; X1; PO
     Route: 048
     Dates: start: 20130602, end: 20130602

REACTIONS (3)
  - Poisoning [None]
  - Accidental exposure to product by child [None]
  - Abnormal behaviour [None]
